FAERS Safety Report 9131025 (Version 1)
Quarter: 2013Q1

REPORT INFORMATION
  Report Type: Spontaneous
  Country: NL (occurrence: NL)
  Receive Date: 20130301
  Receipt Date: 20130301
  Transmission Date: 20140127
  Serious: Yes (Hospitalization)
  Sender: FDA-Public Use
  Company Number: NL-PFIZER INC-2013070115

PATIENT
  Age: 55 Year
  Sex: Female

DRUGS (5)
  1. METHYLPREDNISOLONE [Suspect]
     Indication: MULTIPLE SCLEROSIS
     Dosage: 1 DF, 1X/DAY
     Dates: start: 20130211
  2. AMITRIPTYLINE [Concomitant]
     Dosage: 20 MG, 1X/DAY
     Dates: start: 2005
  3. SEROXAT ^CIBA-GEIGY^ [Concomitant]
     Dosage: 30 MG, 1X/DAY
     Dates: start: 20101122
  4. BACLOFEN [Concomitant]
     Dosage: 10 MG, 2X/DAY
     Dates: start: 20130205
  5. LYRICA [Concomitant]
     Dosage: 150 MG, 1X/DAY
     Dates: start: 20050808

REACTIONS (2)
  - Epistaxis [Recovered/Resolved]
  - Headache [Recovered/Resolved]
